FAERS Safety Report 17740097 (Version 1)
Quarter: 2020Q2

REPORT INFORMATION
  Report Type: Spontaneous
  Country: US (occurrence: US)
  Receive Date: 20200503
  Receipt Date: 20200503
  Transmission Date: 20200714
  Serious: Yes (Life-Threatening, Hospitalization, Disabling, Other)
  Sender: FDA-Public Use
  Company Number: None

PATIENT
  Age: 34 Year
  Sex: Male
  Weight: 67.5 kg

DRUGS (9)
  1. DEXTROAMPHETAMINE. [Concomitant]
     Active Substance: DEXTROAMPHETAMINE
  2. KRILL OIL [Concomitant]
     Active Substance: DIETARY SUPPLEMENT\KRILL OIL
  3. TUMERIC [Concomitant]
     Active Substance: HERBALS\TURMERIC
  4. CLINAZAPAM [Concomitant]
  5. CBD [Concomitant]
     Active Substance: CANNABIDIOL
  6. GABAPENTIN. [Concomitant]
     Active Substance: GABAPENTIN
  7. VITAMIN B COMPLEX [Concomitant]
     Active Substance: CYANOCOBALAMIN\DEXPANTHENOL\NIACINAMIDE\PYRIDOXINE HYDROCHLORIDE\RIBOFLAVIN 5^-PHOSPHATE SODIUM\THIAMINE HYDROCHLORIDE\VITAMIN B COMPLEX
  8. MEMANTINE. [Concomitant]
     Active Substance: MEMANTINE
  9. BRIVIACT [Suspect]
     Active Substance: BRIVARACETAM
     Indication: SEIZURE
     Route: 048
     Dates: start: 20190930, end: 20200108

REACTIONS (8)
  - Poisoning [None]
  - Mania [None]
  - Depression [None]
  - Diplopia [None]
  - Paranoia [None]
  - Legal problem [None]
  - Status epilepticus [None]
  - Epistaxis [None]

NARRATIVE: CASE EVENT DATE: 20200125
